FAERS Safety Report 7878886-8 (Version None)
Quarter: 2011Q4

REPORT INFORMATION
  Report Type: 
  Country: None (occurrence: None)
  Receive Date: 20111021
  Receipt Date: 20100923
  Transmission Date: 20120403
  Serious: No
  Sender: FDA-Public Use
  Company Number: 2010SP051217

PATIENT
  Age: 60 Year
  Sex: Male

DRUGS (3)
  1. ZOFRAN [Concomitant]
  2. DARVOCET [Concomitant]
  3. TEMODAR [Suspect]
     Indication: ANAPLASTIC ASTROCYTOMA
     Dosage: 440 MG; QD; PO
     Route: 048
     Dates: start: 20100820

REACTIONS (5)
  - PRURITUS [None]
  - HEADACHE [None]
  - RASH PAPULAR [None]
  - CONSTIPATION [None]
  - HYPERSENSITIVITY [None]
